FAERS Safety Report 5666869-8 (Version None)
Quarter: 2008Q1

REPORT INFORMATION
  Report Type: 
  Country: None (occurrence: None)
  Receive Date: 20080315
  Receipt Date: 20071227
  Transmission Date: 20080703
  Serious: No
  Sender: FDA-Public Use
  Company Number: US-ABBOTT-08P-163-0432269-00

PATIENT
  Age: 82 Year
  Sex: Male

DRUGS (4)
  1. HUMIRA [Suspect]
     Indication: RHEUMATOID ARTHRITIS
     Route: 058
     Dates: start: 20060201, end: 20071201
  2. BLOOD PRESSURE MEDICATION [Concomitant]
     Indication: BLOOD PRESSURE
  3. THYROID MEDICINE [Concomitant]
     Indication: THYROID DISORDER
  4. CELECOXIB [Concomitant]
     Indication: ARTHRALGIA

REACTIONS (1)
  - IMPAIRED HEALING [None]
